FAERS Safety Report 23274044 (Version 1)
Quarter: 2023Q4

REPORT INFORMATION
  Report Type: Spontaneous
  Country: US (occurrence: US)
  Receive Date: 20231208
  Receipt Date: 20231208
  Transmission Date: 20240110
  Serious: No
  Sender: FDA-Public Use
  Company Number: US-drreddys-SPO/USA/23/0187784

PATIENT
  Age: 17 Year

DRUGS (1)
  1. ACCUTANE [Suspect]
     Active Substance: ISOTRETINOIN
     Indication: Product used for unknown indication
     Dates: start: 20230917

REACTIONS (5)
  - Dandruff [Unknown]
  - Acne [Unknown]
  - Treatment noncompliance [Unknown]
  - Chapped lips [Unknown]
  - Dry skin [Unknown]
